FAERS Safety Report 8505822-3 (Version None)
Quarter: 2012Q3

REPORT INFORMATION
  Report Type: 
  Country: None (occurrence: None)
  Receive Date: 20120706
  Receipt Date: 20120706
  Transmission Date: 20120928
  Serious: Yes (Other)
  Sender: FDA-Public Use
  Company Number: None

PATIENT
  Age: 67 Year
  Sex: Female

DRUGS (1)
  1. LISTERINE ANTIBACTERIAL [Suspect]
     Indication: PRODUCT USED FOR UNKNOWN INDICATION

REACTIONS (4)
  - ORAL DISCOMFORT [None]
  - MOUTH ULCERATION [None]
  - GLOSSODYNIA [None]
  - APPLICATION SITE BURN [None]
